FAERS Safety Report 13434460 (Version 4)
Quarter: 2017Q3

REPORT INFORMATION
  Report Type: Spontaneous
  Country: KR (occurrence: KR)
  Receive Date: 20170412
  Receipt Date: 20170802
  Transmission Date: 20171127
  Serious: Yes (Hospitalization, Other)
  Sender: FDA-Public Use
  Company Number: KR-009507513-1704KOR004047

PATIENT
  Age: 43 Year
  Sex: Male
  Weight: 73 kg

DRUGS (49)
  1. EMEND (FOSAPREPITANT DIMEGLUMINE) [Suspect]
     Active Substance: FOSAPREPITANT DIMEGLUMINE
     Dosage: 150 MG, ONCE
     Route: 042
     Dates: start: 20160929, end: 20160929
  2. VINCRISTINE SULFATE. [Concomitant]
     Active Substance: VINCRISTINE SULFATE
     Dosage: 2 MG, ONCE. CYCLE 4. STRENGHT: 1 MG/ML, 2 ML.
     Route: 042
     Dates: start: 20160819, end: 20160819
  3. VINCRISTINE SULFATE. [Concomitant]
     Active Substance: VINCRISTINE SULFATE
     Dosage: 2 MG, ONCE. CYCLE 6. STRENGHT: 1 MG/ML, 2 ML.
     Route: 042
     Dates: start: 20160929, end: 20160929
  4. MABTHERA [Concomitant]
     Active Substance: RITUXIMAB
     Dosage: 700 MG, ONCE. CYCLE 5
     Route: 042
     Dates: start: 20160908, end: 20160908
  5. SOLONDO [Concomitant]
     Active Substance: PREDNISOLONE
     Dosage: THREE TIMES A DAY - 40 MG IN THE MORNING AND 30 MG FOR LUNCH AND DINNER TIME.
     Route: 048
     Dates: start: 20160908, end: 20160912
  6. ALOXI [Concomitant]
     Active Substance: PALONOSETRON HYDROCHLORIDE
     Indication: PREMEDICATION
     Dosage: 0.25 ML, ONCE
     Route: 042
     Dates: start: 20160608, end: 20160608
  7. ALOXI [Concomitant]
     Active Substance: PALONOSETRON HYDROCHLORIDE
     Dosage: 5 ML, ONCE
     Route: 042
     Dates: start: 20160819, end: 20160819
  8. BARACLUDE [Concomitant]
     Active Substance: ENTECAVIR
     Indication: PROPHYLAXIS
     Dosage: 0.5 MG, QD
     Route: 048
     Dates: start: 20160607
  9. GASTER [Concomitant]
     Active Substance: FAMOTIDINE
     Indication: PROPHYLAXIS
     Dosage: 20 MJG (1 TABLET), BID. MEDICATION WAS ON AND OFF AFTER EVERY CHEMOTHERAOY FOR 3-4 DAYS.
     Route: 048
     Dates: start: 20160607, end: 20161004
  10. ENDOXAN [Concomitant]
     Active Substance: CYCLOPHOSPHAMIDE
     Dosage: 1385 MG, ONCE. CYCLE 5
     Route: 042
     Dates: start: 20160908, end: 20160908
  11. DOXORUBICIN HYDROCHLORIDE. [Concomitant]
     Active Substance: DOXORUBICIN HYDROCHLORIDE
     Indication: DIFFUSE LARGE B-CELL LYMPHOMA
     Dosage: 90 MG, ONCE. CYCLE 1
     Route: 042
     Dates: start: 20160608, end: 20160608
  12. DOXORUBICIN HYDROCHLORIDE. [Concomitant]
     Active Substance: DOXORUBICIN HYDROCHLORIDE
     Dosage: 90 MG, ONCE. CYCLE 3
     Route: 042
     Dates: start: 20160719, end: 20160719
  13. DOXORUBICIN HYDROCHLORIDE. [Concomitant]
     Active Substance: DOXORUBICIN HYDROCHLORIDE
     Dosage: 90 MG, ONCE. CYCLE 4
     Route: 042
     Dates: start: 20160819, end: 20160819
  14. MABTHERA [Concomitant]
     Active Substance: RITUXIMAB
     Dosage: 700 MG, ONCE. CYCLE 6
     Route: 042
     Dates: start: 20160929, end: 20160929
  15. SOLONDO [Concomitant]
     Active Substance: PREDNISOLONE
     Dosage: THREE TIMES A DAY - 40 MG IN THE MORNING AND 30 MG FOR LUNCH AND DINNER TIME.
     Route: 048
     Dates: start: 20160719, end: 20160723
  16. SOLONDO [Concomitant]
     Active Substance: PREDNISOLONE
     Dosage: THREE TIMES A DAY - 40 MG IN THE MORNING AND 30 MG FOR LUNCH AND DINNER TIME.
     Route: 048
     Dates: start: 20160929, end: 20161003
  17. FAMOTIDINE. [Concomitant]
     Active Substance: FAMOTIDINE
     Indication: PROPHYLAXIS
  18. ENDOXAN [Concomitant]
     Active Substance: CYCLOPHOSPHAMIDE
     Dosage: 1385 MG, ONCE. CYCLE 4
     Route: 042
     Dates: start: 20160819, end: 20160819
  19. SOLONDO [Concomitant]
     Active Substance: PREDNISOLONE
     Dosage: THREE TIMES A DAY - 40 MG IN THE MORNING AND 30 MG FOR LUNCH AND DINNER TIME.
     Route: 048
     Dates: start: 20160819, end: 20160823
  20. TACENOL [Concomitant]
     Indication: PROPHYLAXIS
     Dosage: 650 MG, QD. AFTER EVERY CHEMOTHERAPY FOR A DAY
     Route: 048
     Dates: start: 20160608, end: 20160908
  21. NEULASTA [Concomitant]
     Active Substance: PEGFILGRASTIM
     Indication: PROPHYLAXIS
     Dosage: 6 MG, QD. IT WAS INJECTED ONE TIME AFTER EVERY CHEMOTHERAPY. FORMULATION: PREFILLED SYRINGE.
     Route: 058
     Dates: start: 20160609, end: 20160930
  22. EMEND (FOSAPREPITANT DIMEGLUMINE) [Suspect]
     Active Substance: FOSAPREPITANT DIMEGLUMINE
     Dosage: 150 MG, ONCE
     Route: 042
     Dates: start: 20160819, end: 20160819
  23. DOXORUBICIN HYDROCHLORIDE. [Concomitant]
     Active Substance: DOXORUBICIN HYDROCHLORIDE
     Dosage: 90 MG, ONCE. CYCLE 5
     Route: 042
     Dates: start: 20160908, end: 20160908
  24. DOXORUBICIN HYDROCHLORIDE. [Concomitant]
     Active Substance: DOXORUBICIN HYDROCHLORIDE
     Dosage: 90 MG, ONCE. CYCLE 6
     Route: 042
     Dates: start: 20160929, end: 20160929
  25. VINCRISTINE SULFATE. [Concomitant]
     Active Substance: VINCRISTINE SULFATE
     Indication: DIFFUSE LARGE B-CELL LYMPHOMA
     Dosage: 2 MG, ONCE. CYCLE 2. STRENGHT: 1 MG/ML, 1 ML
     Route: 042
     Dates: start: 20160608, end: 20160608
  26. VINCRISTINE SULFATE. [Concomitant]
     Active Substance: VINCRISTINE SULFATE
     Dosage: 2 MG, ONCE. CYCLE 3. STRENGHT: 1 MG/ML, 2 ML.
     Route: 042
     Dates: start: 20160719, end: 20160719
  27. VINCRISTINE SULFATE. [Concomitant]
     Active Substance: VINCRISTINE SULFATE
     Dosage: 2 MG, ONCE. CYCLE 5. STRENGHT: 1 MG/ML, 2 ML.
     Route: 042
     Dates: start: 20160908, end: 20160908
  28. SOLONDO [Concomitant]
     Active Substance: PREDNISOLONE
     Dosage: THREE TIMES A DAY - 40 MG IN THE MORNING AND 30 MG FOR LUNCH AND DINNER TIME.
     Route: 048
     Dates: start: 20160629, end: 20160703
  29. ALOXI [Concomitant]
     Active Substance: PALONOSETRON HYDROCHLORIDE
     Dosage: 5 ML, ONCE
     Route: 042
     Dates: start: 20160629, end: 20160629
  30. ALOXI [Concomitant]
     Active Substance: PALONOSETRON HYDROCHLORIDE
     Dosage: 5 ML, ONCE
     Route: 042
     Dates: start: 20160908, end: 20160908
  31. CHLORPHENIRAMINE MALEATE. [Concomitant]
     Active Substance: CHLORPHENIRAMINE MALEATE
     Indication: PREMEDICATION
     Dosage: 4 MG, BID. STRENGHT: 2 MG/ML. INJECTED AFTER EVERY CHEMOTHERAPY FOR A DAY.
     Route: 042
     Dates: start: 20160608, end: 20160929
  32. EMEND (FOSAPREPITANT DIMEGLUMINE) [Suspect]
     Active Substance: FOSAPREPITANT DIMEGLUMINE
     Indication: PROPHYLAXIS OF NAUSEA AND VOMITING
     Dosage: 150 MG, ONCE
     Route: 042
     Dates: start: 20160608, end: 20160608
  33. EMEND (FOSAPREPITANT DIMEGLUMINE) [Suspect]
     Active Substance: FOSAPREPITANT DIMEGLUMINE
     Dosage: 150 MG, ONCE
     Route: 042
     Dates: start: 20160719, end: 20160719
  34. EMEND (FOSAPREPITANT DIMEGLUMINE) [Suspect]
     Active Substance: FOSAPREPITANT DIMEGLUMINE
     Dosage: 150 MG, ONCE
     Route: 042
     Dates: start: 20160908, end: 20160908
  35. ENDOXAN [Concomitant]
     Active Substance: CYCLOPHOSPHAMIDE
     Dosage: 1385 MG, ONCE. CYCLE 2
     Route: 042
     Dates: start: 20160629, end: 20160629
  36. DOXORUBICIN HYDROCHLORIDE. [Concomitant]
     Active Substance: DOXORUBICIN HYDROCHLORIDE
     Dosage: 90 MG, ONCE. CYCLE 2
     Route: 042
     Dates: start: 20160629, end: 20160629
  37. MABTHERA [Concomitant]
     Active Substance: RITUXIMAB
     Dosage: 700 MG, ONCE. CYCLE 3
     Route: 042
     Dates: start: 20160719, end: 20160719
  38. ENDOXAN [Concomitant]
     Active Substance: CYCLOPHOSPHAMIDE
     Dosage: 1385 MG, ONCE. CYCLE 3
     Route: 042
     Dates: start: 20160719, end: 20160719
  39. MABTHERA [Concomitant]
     Active Substance: RITUXIMAB
     Dosage: 700 MG, ONCE. CYCLE 4
     Route: 042
     Dates: start: 20160819, end: 20160819
  40. ALOXI [Concomitant]
     Active Substance: PALONOSETRON HYDROCHLORIDE
     Dosage: 5 ML, ONCE
     Route: 042
     Dates: start: 20160929, end: 20160929
  41. FAMOTIDINE. [Concomitant]
     Active Substance: FAMOTIDINE
     Indication: ANTIALLERGIC THERAPY
     Dosage: 20 MG, BID
     Route: 048
     Dates: start: 20160608, end: 20160723
  42. EMEND (FOSAPREPITANT DIMEGLUMINE) [Suspect]
     Active Substance: FOSAPREPITANT DIMEGLUMINE
     Dosage: 150 MG, ONCE
     Route: 042
     Dates: start: 20160629, end: 20160629
  43. ENDOXAN [Concomitant]
     Active Substance: CYCLOPHOSPHAMIDE
     Dosage: 1385 MG, ONCE. CYCLE 6
     Route: 042
     Dates: start: 20160929, end: 20160929
  44. MABTHERA [Concomitant]
     Active Substance: RITUXIMAB
     Indication: DIFFUSE LARGE B-CELL LYMPHOMA
     Dosage: 700 MG, ONCE. CYCLE 1
     Route: 042
     Dates: start: 20160608, end: 20160608
  45. MABTHERA [Concomitant]
     Active Substance: RITUXIMAB
     Dosage: 700 MG, ONCE. CYCLE 2
     Route: 042
     Dates: start: 20160629, end: 20160629
  46. ALOXI [Concomitant]
     Active Substance: PALONOSETRON HYDROCHLORIDE
     Dosage: 5 ML, ONCE
     Route: 042
     Dates: start: 20160719, end: 20160719
  47. ENDOXAN [Concomitant]
     Active Substance: CYCLOPHOSPHAMIDE
     Indication: DIFFUSE LARGE B-CELL LYMPHOMA
     Dosage: 1385 MG, ONCE. CYCLE 1
     Route: 042
     Dates: start: 20160608, end: 20160629
  48. VINCRISTINE SULFATE. [Concomitant]
     Active Substance: VINCRISTINE SULFATE
     Dosage: 2 MG, ONCE. CYCLE 2. STRENGHT: 1 MG/ML, 2 ML.
     Route: 042
     Dates: start: 20160629, end: 20160629
  49. SOLONDO [Concomitant]
     Active Substance: PREDNISOLONE
     Indication: PREMEDICATION
     Dosage: THREE TIMES A DAY - 40 MG IN THE MORNING AND 30 MG FOR LUNCH AND DINNER TIME.
     Route: 048
     Dates: start: 20160608, end: 20160612

REACTIONS (2)
  - Pneumonia [Recovered/Resolved]
  - Diabetes mellitus [Not Recovered/Not Resolved]

NARRATIVE: CASE EVENT DATE: 20160629
